FAERS Safety Report 20096956 (Version 1)
Quarter: 2021Q4

REPORT INFORMATION
  Report Type: Spontaneous
  Country: ES (occurrence: ES)
  Receive Date: 20211122
  Receipt Date: 20211122
  Transmission Date: 20220303
  Serious: Yes (Other)
  Sender: FDA-Public Use
  Company Number: ES-SCALL-2021-ES-000128

PATIENT
  Sex: Male

DRUGS (1)
  1. DUTASTERIDE\TAMSULOSIN HYDROCHLORIDE [Suspect]
     Active Substance: DUTASTERIDE\TAMSULOSIN HYDROCHLORIDE
     Indication: Prostatic disorder
     Dosage: UNK (0.5MG/0.4MG)
     Route: 048

REACTIONS (4)
  - Blindness [Unknown]
  - Penile size reduced [Unknown]
  - Phimosis [Unknown]
  - Drug ineffective [Unknown]
